FAERS Safety Report 20877711 (Version 2)
Quarter: 2022Q2

REPORT INFORMATION
  Report Type: Spontaneous
  Country: CN (occurrence: CN)
  Receive Date: 20220526
  Receipt Date: 20220607
  Transmission Date: 20220721
  Serious: Yes (Hospitalization, Other)
  Sender: FDA-Public Use
  Company Number: None

PATIENT
  Age: 79 Year
  Sex: Female

DRUGS (1)
  1. METOPROLOL SUCCINATE [Suspect]
     Active Substance: METOPROLOL SUCCINATE
     Indication: Cardiac failure
     Route: 048
     Dates: start: 20220201, end: 20220508

REACTIONS (10)
  - Dysstasia [Recovering/Resolving]
  - Amaurosis [Unknown]
  - Muscular weakness [Unknown]
  - Dizziness [Recovering/Resolving]
  - Chest discomfort [Recovering/Resolving]
  - Asthenia [Recovering/Resolving]
  - Syncope [Recovering/Resolving]
  - Atrial fibrillation [Unknown]
  - Palpitations [Unknown]
  - Tachypnoea [Unknown]

NARRATIVE: CASE EVENT DATE: 20220508
